FAERS Safety Report 8023289-9 (Version None)
Quarter: 2012Q1

REPORT INFORMATION
  Report Type: 
  Country: None (occurrence: None)
  Receive Date: 20120104
  Receipt Date: 20120103
  Transmission Date: 20120608
  Serious: Yes (Death)
  Sender: FDA-Public Use
  Company Number: US-PFIZER INC-2011308888

PATIENT
  Age: 52 Year
  Sex: Female

DRUGS (3)
  1. IBUPROFEN [Suspect]
  2. ACETAMINOPHEN [Suspect]
  3. ACETAMINOPHEN AND HYDROCODONE BITARTRATE [Suspect]

REACTIONS (1)
  - COMPLETED SUICIDE [None]
